FAERS Safety Report 4413130-5 (Version None)
Quarter: 2004Q3

REPORT INFORMATION
  Report Type: 
  Country: None (occurrence: None)
  Receive Date: 20040802
  Receipt Date: 20030929
  Transmission Date: 20050211
  Serious: Yes (Other)
  Sender: FDA-Public Use
  Company Number: US-MERCK-0310USA00446

PATIENT
  Age: 32 Year
  Sex: Male
  Weight: 99 kg

DRUGS (1)
  1. VIOXX [Suspect]
     Indication: PAIN
     Route: 048
     Dates: start: 20000101, end: 20020101

REACTIONS (5)
  - ABDOMINAL PAIN UPPER [None]
  - BLOOD PRESSURE INCREASED [None]
  - HEADACHE [None]
  - INGROWING NAIL [None]
  - TOE DEFORMITY [None]
